FAERS Safety Report 6423514-1 (Version None)
Quarter: 2009Q4

REPORT INFORMATION
  Report Type: 
  Country: None (occurrence: None)
  Receive Date: 20091030
  Receipt Date: 20091030
  Transmission Date: 20100525
  Serious: Yes (Other)
  Sender: FDA-Public Use
  Company Number: None

PATIENT
  Age: 64 Year
  Sex: Female
  Weight: 72.5755 kg

DRUGS (2)
  1. URSO 250 [Suspect]
     Indication: BILIARY CIRRHOSIS PRIMARY
     Dosage: 250 MG 3 PO BID
     Route: 048
     Dates: start: 20090727, end: 20090803
  2. OS-CAL [Concomitant]

REACTIONS (2)
  - ABDOMINAL PAIN [None]
  - PRODUCT SUBSTITUTION ISSUE [None]
